FAERS Safety Report 25517330 (Version 1)
Quarter: 2025Q3

REPORT INFORMATION
  Report Type: Spontaneous
  Country: US (occurrence: US)
  Receive Date: 20250704
  Receipt Date: 20250704
  Transmission Date: 20251020
  Serious: No
  Sender: RADIUS PHARM
  Company Number: US-RADIUS HEALTH INC.-US-RADIUS-25047279

PATIENT
  Age: 63 Year
  Sex: Female

DRUGS (2)
  1. TYMLOS [Suspect]
     Active Substance: ABALOPARATIDE
     Indication: Senile osteoporosis
     Dosage: 80 MILLIGRAM, QD
     Route: 058
     Dates: start: 202504
  2. TYMLOS [Suspect]
     Active Substance: ABALOPARATIDE
     Indication: Spinal pain

REACTIONS (9)
  - Enuresis [Unknown]
  - Defaecation urgency [Unknown]
  - Depressed mood [Unknown]
  - Crying [Unknown]
  - Feeling of body temperature change [Unknown]
  - Feeling abnormal [Unknown]
  - Pain [Unknown]
  - Headache [Unknown]
  - Fatigue [Unknown]

NARRATIVE: CASE EVENT DATE: 20250401
